FAERS Safety Report 23401433 (Version 1)
Quarter: 2024Q1

REPORT INFORMATION
  Report Type: Spontaneous
  Country: ES (occurrence: ES)
  Receive Date: 20240115
  Receipt Date: 20240115
  Transmission Date: 20240410
  Serious: Yes (Hospitalization, Other)
  Sender: FDA-Public Use
  Company Number: ES-BRISTOL-MYERS SQUIBB COMPANY-2024-000717

PATIENT
  Sex: Male

DRUGS (2)
  1. ELIQUIS [Suspect]
     Active Substance: APIXABAN
     Indication: Cardiac disorder
     Route: 048
  2. ELIQUIS [Suspect]
     Active Substance: APIXABAN
     Route: 048

REACTIONS (5)
  - Product shape issue [Unknown]
  - Abdominal discomfort [Unknown]
  - Vomiting [Unknown]
  - Diarrhoea [Unknown]
  - Cerebrovascular accident [Unknown]
